FAERS Safety Report 11708225 (Version 1)
Quarter: 2015Q4

REPORT INFORMATION
  Report Type: Spontaneous
  Country: US (occurrence: US)
  Receive Date: 20151104
  Receipt Date: 20151104
  Transmission Date: 20160304
  Serious: No
  Sender: FDA-Public Use
  Company Number: US-ELI_LILLY_AND_COMPANY-US201101007142

PATIENT
  Sex: Female

DRUGS (2)
  1. FORTEO [Suspect]
     Active Substance: TERIPARATIDE
     Indication: OSTEOPOROSIS
     Dosage: 20 UG, DAILY (1/D)
     Route: 065
     Dates: start: 201012
  2. CALCIUM [Concomitant]
     Active Substance: CALCIUM
     Dosage: 600 U, DAILY (1/D)

REACTIONS (4)
  - Discomfort [Unknown]
  - Pain [Unknown]
  - Blood iron decreased [Unknown]
  - Injury [Unknown]
